FAERS Safety Report 14533971 (Version 1)
Quarter: 2018Q1

REPORT INFORMATION
  Report Type: Spontaneous
  Country: US (occurrence: US)
  Receive Date: 20180214
  Receipt Date: 20180214
  Transmission Date: 20180509
  Serious: Yes (Hospitalization)
  Sender: FDA-Public Use
  Company Number: None

PATIENT
  Sex: Male

DRUGS (13)
  1. ENALAPRIL [Concomitant]
     Active Substance: ENALAPRIL
  2. TRACLEER [Suspect]
     Active Substance: BOSENTAN
     Indication: PULMONARY ARTERIAL HYPERTENSION
     Route: 048
     Dates: start: 20180101, end: 20180209
  3. TAMIFLU [Concomitant]
     Active Substance: OSELTAMIVIR PHOSPHATE
  4. RANITIDINE. [Concomitant]
     Active Substance: RANITIDINE
  5. CLONIDINE. [Concomitant]
     Active Substance: CLONIDINE
  6. GLYCERIN RECT SUPP [Concomitant]
  7. SPIRONOLACTONE. [Concomitant]
     Active Substance: SPIRONOLACTONE
  8. FERROUS SULFATE. [Concomitant]
     Active Substance: FERROUS SULFATE
  9. FUROSEMIDE. [Concomitant]
     Active Substance: FUROSEMIDE
  10. BABY IRON-MVI [Concomitant]
  11. MORPHINE [Concomitant]
     Active Substance: MORPHINE
  12. DIMETHICONE. [Concomitant]
     Active Substance: DIMETHICONE
  13. OMEPRAZOLE. [Concomitant]
     Active Substance: OMEPRAZOLE

REACTIONS (9)
  - Hypercapnia [None]
  - Right ventricular failure [None]
  - Respiratory failure [None]
  - Pulmonary infarction [None]
  - Hypoxia [None]
  - Bronchospasm [None]
  - Acute hepatic failure [None]
  - Upper respiratory tract infection [None]
  - Wheezing [None]

NARRATIVE: CASE EVENT DATE: 20180205
